FAERS Safety Report 9096665 (Version 2)
Quarter: 2013Q4

REPORT INFORMATION
  Report Type: Spontaneous
  Country: GB (occurrence: None)
  Receive Date: 20130125
  Receipt Date: 20131008
  Transmission Date: 20140711
  Serious: Yes (Other)
  Sender: FDA-Public Use
  Company Number: GB-MACLEODS PHARMA-000056

PATIENT
  Age: 67 Year
  Sex: Female

DRUGS (2)
  1. LEVOFLOXACIN [Suspect]
     Indication: INFECTION
     Dosage: 500.00-MG-1.00/ ORAL TIMES PER-1.0 DAYS
     Route: 048
     Dates: start: 20130101, end: 20130102
  2. LEVOTHYROXINE (LEVOTHYROXINE) [Concomitant]

REACTIONS (4)
  - Loss of consciousness [None]
  - Vomiting [None]
  - Diplegia [None]
  - Fall [None]
